FAERS Safety Report 20111653 (Version 1)
Quarter: 2021Q4

REPORT INFORMATION
  Report Type: Report from Study
  Country: IT (occurrence: IT)
  Receive Date: 20211125
  Receipt Date: 20211125
  Transmission Date: 20220303
  Serious: Yes (Other)
  Sender: FDA-Public Use
  Company Number: None

PATIENT
  Age: 74 Year
  Sex: Female

DRUGS (7)
  1. LENALIDOMIDE [Suspect]
     Active Substance: LENALIDOMIDE
     Indication: Plasma cell myeloma
     Dosage: 10 MG
     Route: 048
     Dates: start: 20200313
  2. PANTOPRAZOLE [Concomitant]
     Active Substance: PANTOPRAZOLE
     Dosage: 80 MG
  3. OMEGA 3 EG [Concomitant]
     Dosage: 2 DF
  4. CLOPIDOGREL [Concomitant]
     Active Substance: CLOPIDOGREL BISULFATE
     Dosage: 75 MG
  5. ATORVASTATIN [Concomitant]
     Active Substance: ATORVASTATIN
     Dosage: 20 MG
  6. IVABRADINE [Concomitant]
     Active Substance: IVABRADINE
     Dosage: 2.5 MG
  7. TELMISARTAN [Concomitant]
     Active Substance: TELMISARTAN
     Dosage: 80 MG

REACTIONS (2)
  - Malignant melanoma [Recovered/Resolved]
  - Lentigo [Recovered/Resolved]

NARRATIVE: CASE EVENT DATE: 20210610
